FAERS Safety Report 14964764 (Version 2)
Quarter: 2018Q2

REPORT INFORMATION
  Report Type: Spontaneous
  Country: DE (occurrence: DE)
  Receive Date: 20180601
  Receipt Date: 20180619
  Transmission Date: 20180711
  Serious: Yes (Death, Hospitalization)
  Sender: FDA-Public Use
  Company Number: DE-TEVA-2018-DE-898167

PATIENT
  Age: 63 Year
  Sex: Male
  Weight: 91 kg

DRUGS (14)
  1. IRINOTECAN [Suspect]
     Active Substance: IRINOTECAN
     Route: 042
     Dates: start: 20130729, end: 20131029
  2. 5- FLUOROURACIL [Suspect]
     Active Substance: FLUOROURACIL
     Indication: COLORECTAL CANCER
     Dosage: DAILY DOSE: 4000 MG MILLGRAM(S) EVERY WEEKS
     Route: 042
     Dates: start: 20130610, end: 20131029
  3. AVASTIN [Suspect]
     Active Substance: BEVACIZUMAB
     Dosage: DAILY DOSE: 450 MG MILLGRAM(S) EVERY 15 DAYS
     Route: 042
     Dates: start: 20140224, end: 20140310
  4. AVASTIN [Suspect]
     Active Substance: BEVACIZUMAB
     Indication: COLORECTAL CANCER
     Dosage: DAILY DOSE: 450 MG MILLGRAM(S) EVERY 2 WEEKS
     Route: 042
     Dates: start: 20130610, end: 20140210
  5. AMLODIPIN [Concomitant]
     Active Substance: AMLODIPINE BESYLATE
     Indication: HYPERTENSION
     Route: 048
     Dates: start: 20050107, end: 20140402
  6. FOLINIC ACID [Suspect]
     Active Substance: LEUCOVORIN
     Indication: COLORECTAL CANCER
     Route: 042
     Dates: start: 20130610, end: 20131029
  7. ALLOPURINOL. [Concomitant]
     Active Substance: ALLOPURINOL
     Route: 048
     Dates: start: 20050107, end: 20140402
  8. IRINOTECAN [Suspect]
     Active Substance: IRINOTECAN
     Indication: COLORECTAL CANCER
     Dosage: 160 MILLIGRAM DAILY;
     Route: 042
     Dates: start: 20130617, end: 20130722
  9. OXALIPLATIN. [Suspect]
     Active Substance: OXALIPLATIN
     Indication: COLORECTAL CANCER
     Route: 042
     Dates: start: 20140224, end: 20140317
  10. IRINOTECAN [Suspect]
     Active Substance: IRINOTECAN
     Route: 042
     Dates: start: 20130610
  11. LEUCOVORIN. [Suspect]
     Active Substance: LEUCOVORIN
     Indication: COLORECTAL CANCER
     Route: 065
     Dates: start: 20130610, end: 20131029
  12. ALLOPURINOL. [Concomitant]
     Active Substance: ALLOPURINOL
     Indication: HYPERCHOLESTEROLAEMIA
     Dosage: 300 MILLIGRAM DAILY; DAILY DOSE: 300 MG MILLGRAM(S) EVERY DAYS
     Route: 048
     Dates: end: 20140402
  13. NORVASC [Concomitant]
     Active Substance: AMLODIPINE BESYLATE
     Indication: HYPERTENSION
     Dosage: 5 MILLIGRAM DAILY; DAILY DOSE: 5 MG MILLGRAM(S) EVERY DAYS
     Route: 048
     Dates: start: 20050107, end: 20140402
  14. 5- FLUOROURACIL [Suspect]
     Active Substance: FLUOROURACIL
     Dosage: DAILY DOSE: 4000 MG MILLGRAM(S) EVERY 8 DAYS
     Route: 042
     Dates: start: 20140224, end: 20140317

REACTIONS (6)
  - Haematemesis [Fatal]
  - Oesophagobronchial fistula [Fatal]
  - Pulmonary haemorrhage [Fatal]
  - Necrotising colitis [Fatal]
  - Atelectasis [Recovered/Resolved]
  - Colorectal cancer [Fatal]

NARRATIVE: CASE EVENT DATE: 20131210
